FAERS Safety Report 8585605-9 (Version None)
Quarter: 2012Q3

REPORT INFORMATION
  Report Type: 
  Country: None (occurrence: None)
  Receive Date: 20120810
  Receipt Date: 20120803
  Transmission Date: 20120928
  Serious: Yes (Other)
  Sender: FDA-Public Use
  Company Number: US-JNJFOC-20120802598

PATIENT
  Sex: Male
  Weight: 108.86 kg

DRUGS (1)
  1. NUCYNTA ER [Suspect]
     Indication: ROTATOR CUFF SYNDROME
     Dosage: ONE EVERY 4 HOURS OR 2 EVERY 6 HOURS
     Route: 048
     Dates: start: 20120730

REACTIONS (7)
  - DISORIENTATION [None]
  - PRURITUS [None]
  - HYPERHIDROSIS [None]
  - CONFUSIONAL STATE [None]
  - FATIGUE [None]
  - NAUSEA [None]
  - PAIN [None]
